FAERS Safety Report 7880352-0 (Version None)
Quarter: 2011Q4

REPORT INFORMATION
  Report Type: 
  Country: None (occurrence: None)
  Receive Date: 20111101
  Receipt Date: 20111028
  Transmission Date: 20120403
  Serious: Yes (Hospitalization, Other)
  Sender: FDA-Public Use
  Company Number: US-PFIZER INC-2011264135

PATIENT
  Sex: Female

DRUGS (1)
  1. CHANTIX [Suspect]
     Indication: SMOKING CESSATION THERAPY
     Dosage: UNK
     Dates: start: 20081101, end: 20080101

REACTIONS (5)
  - HEAD INJURY [None]
  - CONVULSION [None]
  - ROAD TRAFFIC ACCIDENT [None]
  - THERMAL BURN [None]
  - LOSS OF CONSCIOUSNESS [None]
